FAERS Safety Report 14139594 (Version 4)
Quarter: 2018Q4

REPORT INFORMATION
  Report Type: Report from Study
  Country: BR (occurrence: BR)
  Receive Date: 20171029
  Receipt Date: 20181009
  Transmission Date: 20190204
  Serious: Yes (Life-Threatening, Hospitalization, Disabling, Other)
  Sender: FDA-Public Use
  Company Number: PHHY2017BR035645

PATIENT
  Sex: Male
  Weight: 49 kg

DRUGS (14)
  1. PIROXICAM. [Suspect]
     Active Substance: PIROXICAM
     Indication: ARTHRITIS
     Dosage: UNK
     Route: 065
     Dates: start: 2001
  2. LOSARTAN. [Concomitant]
     Active Substance: LOSARTAN
     Indication: BLOOD PRESSURE ABNORMAL
  3. AMLODIPINE [Concomitant]
     Active Substance: AMLODIPINE BESYLATE
     Indication: HYPERTENSION
     Dosage: 2 DF, QD
     Route: 048
  4. AMLODIPINE [Concomitant]
     Active Substance: AMLODIPINE BESYLATE
     Indication: BLOOD PRESSURE ABNORMAL
  5. COSENTYX [Suspect]
     Active Substance: SECUKINUMAB
     Indication: ANKYLOSING SPONDYLITIS
     Dosage: 150 MG, QMO
     Route: 058
  6. NIMESULIDE [Suspect]
     Active Substance: NIMESULIDE
     Indication: ARTHRITIS
     Dosage: UNK
     Route: 065
     Dates: start: 2001
  7. NIMESULIDE [Suspect]
     Active Substance: NIMESULIDE
     Indication: RHEUMATOID ARTHRITIS
  8. DIURETIC [Concomitant]
     Active Substance: UNSPECIFIED INGREDIENT
     Indication: PRODUCT USED FOR UNKNOWN INDICATION
     Dosage: 1 DF, QD
     Route: 065
  9. OMEPRAZOLE. [Concomitant]
     Active Substance: OMEPRAZOLE
     Indication: ABDOMINAL DISCOMFORT
     Dosage: UNK
     Route: 065
     Dates: start: 2001
  10. PIROXICAM. [Suspect]
     Active Substance: PIROXICAM
     Indication: RHEUMATOID ARTHRITIS
  11. LOSARTAN. [Concomitant]
     Active Substance: LOSARTAN
     Indication: HYPERTENSION
     Dosage: 2 DF, QD
     Route: 048
  12. PREDNISONE. [Suspect]
     Active Substance: PREDNISONE
     Indication: ARTHRITIS
     Dosage: 2 DF, QD
     Route: 048
     Dates: start: 2001
  13. FUROSEMIDE. [Concomitant]
     Active Substance: FUROSEMIDE
     Indication: PRODUCT USED FOR UNKNOWN INDICATION
     Route: 065
  14. COSENTYX [Suspect]
     Active Substance: SECUKINUMAB
     Indication: RHEUMATOID ARTHRITIS
     Dosage: 150 MG, EVERY 15 DAYS
     Route: 058
     Dates: start: 20161201

REACTIONS (27)
  - Rheumatoid arthritis [Not Recovered/Not Resolved]
  - Fluid retention [Recovering/Resolving]
  - Cardiac disorder [Unknown]
  - Somnolence [Unknown]
  - Pyrexia [Unknown]
  - Pain [Recovering/Resolving]
  - Lethargy [Unknown]
  - Swelling [Unknown]
  - Dehydration [Unknown]
  - Dysuria [Unknown]
  - Joint swelling [Not Recovered/Not Resolved]
  - Oedema [Unknown]
  - Arthralgia [Not Recovered/Not Resolved]
  - Rash [Unknown]
  - Urine output decreased [Unknown]
  - Mobility decreased [Unknown]
  - Inflammation [Not Recovered/Not Resolved]
  - Micturition urgency [Unknown]
  - Urinary tract infection [Unknown]
  - Product use in unapproved indication [Unknown]
  - Renal disorder [Not Recovered/Not Resolved]
  - Peripheral swelling [Not Recovered/Not Resolved]
  - Malaise [Unknown]
  - Infection [Unknown]
  - Feeling abnormal [Unknown]
  - Abdominal distension [Unknown]
  - Inappropriate schedule of product administration [Unknown]

NARRATIVE: CASE EVENT DATE: 2017
